FAERS Safety Report 4701833-4 (Version None)
Quarter: 2005Q2

REPORT INFORMATION
  Report Type: 
  Country: None (occurrence: None)
  Receive Date: 20050627
  Receipt Date: 20050615
  Transmission Date: 20051028
  Serious: Yes (Other)
  Sender: FDA-Public Use
  Company Number: US-2005-010498

PATIENT
  Age: 78 Year
  Sex: Female

DRUGS (1)
  1. BETASERON [Suspect]
     Indication: MULTIPLE SCLEROSIS
     Dosage: 8 MIU, EVERY 2D AT HS, SUBCUTANEOUS
     Route: 058
     Dates: start: 19931218

REACTIONS (5)
  - COLITIS [None]
  - FATIGUE [None]
  - NECK PAIN [None]
  - PAIN IN EXTREMITY [None]
  - SHOULDER PAIN [None]
